FAERS Safety Report 7010044-1 (Version None)
Quarter: 2010Q3

REPORT INFORMATION
  Report Type: 
  Country: None (occurrence: None)
  Receive Date: 20100923
  Receipt Date: 20100809
  Transmission Date: 20110219
  Serious: Yes (Life-Threatening, Other)
  Sender: FDA-Public Use
  Company Number: US-BAXTER-2009BH011153

PATIENT
  Age: 59 Year
  Sex: Female
  Weight: 68 kg

DRUGS (17)
  1. HEPARIN SODIUM INJECTION [Suspect]
     Indication: THROMBOSIS PROPHYLAXIS
     Route: 042
     Dates: start: 20071203
  2. HEPARIN SODIUM INJECTION [Suspect]
     Route: 058
     Dates: start: 20071214
  3. HEPARIN SODIUM INJECTION [Suspect]
     Route: 058
     Dates: start: 20080110, end: 20080126
  4. HEPARIN SODIUM 5,000 UNITS IN DEXTROSE 5% [Suspect]
     Indication: ANTICOAGULANT THERAPY
     Route: 041
     Dates: start: 20071209, end: 20071213
  5. HEPARIN LOCK FLUSH [Suspect]
     Indication: CENTRAL VENOUS CATHETERISATION
     Route: 042
     Dates: start: 20080119, end: 20080121
  6. SIMVASTATIN [Concomitant]
     Indication: PRODUCT USED FOR UNKNOWN INDICATION
     Route: 065
  7. PAXIL [Concomitant]
     Indication: PRODUCT USED FOR UNKNOWN INDICATION
     Route: 065
  8. AMARYL [Concomitant]
     Indication: PRODUCT USED FOR UNKNOWN INDICATION
     Route: 065
  9. ZEBETA [Concomitant]
     Indication: PRODUCT USED FOR UNKNOWN INDICATION
     Route: 065
  10. LANTUS [Concomitant]
     Indication: PRODUCT USED FOR UNKNOWN INDICATION
     Route: 065
  11. VITAMIN D [Concomitant]
     Indication: PRODUCT USED FOR UNKNOWN INDICATION
     Route: 065
  12. PAXIL [Concomitant]
     Route: 065
  13. LANTUS [Concomitant]
     Route: 065
  14. AMARYL [Concomitant]
     Route: 065
  15. BISOPROLOL FUMARATE [Concomitant]
     Indication: PRODUCT USED FOR UNKNOWN INDICATION
     Route: 065
  16. DYAZIDE [Concomitant]
     Indication: PRODUCT USED FOR UNKNOWN INDICATION
     Route: 065
  17. ATORVASTATIN CALCIUM [Concomitant]
     Indication: PRODUCT USED FOR UNKNOWN INDICATION
     Route: 065

REACTIONS (24)
  - AMNESIA [None]
  - ANXIETY [None]
  - ATRIAL FIBRILLATION [None]
  - CARDIAC FAILURE [None]
  - CARDIAC TAMPONADE [None]
  - CONFUSIONAL STATE [None]
  - DEPRESSION [None]
  - DIARRHOEA [None]
  - DISTURBANCE IN ATTENTION [None]
  - FEELING HOT [None]
  - HYPERGLYCAEMIA [None]
  - HYPERHIDROSIS [None]
  - HYPOTENSION [None]
  - HYPOXIC-ISCHAEMIC ENCEPHALOPATHY [None]
  - MALNUTRITION [None]
  - NAUSEA [None]
  - PNEUMONIA [None]
  - PRURITUS [None]
  - RENAL FAILURE [None]
  - RESPIRATORY FAILURE [None]
  - SHOCK [None]
  - SKIN BURNING SENSATION [None]
  - STAPHYLOCOCCAL BACTERAEMIA [None]
  - VOMITING [None]
